FAERS Safety Report 4816620-6 (Version None)
Quarter: 2005Q4

REPORT INFORMATION
  Report Type: 
  Country: None (occurrence: None)
  Receive Date: 20051031
  Receipt Date: 20051031
  Transmission Date: 20060501
  Serious: Yes (Other)
  Sender: FDA-Public Use
  Company Number: None

PATIENT
  Age: 20 Year
  Sex: Female

DRUGS (1)
  1. VICODIN [Suspect]
     Indication: PAIN
     Dosage: 2 TAB PO 3 DOSES OF 2
     Route: 048
     Dates: start: 20051001, end: 20051005

REACTIONS (1)
  - PRURITUS [None]
